FAERS Safety Report 8405990-8 (Version None)
Quarter: 2012Q2

REPORT INFORMATION
  Report Type: 
  Country: None (occurrence: None)
  Receive Date: 20120604
  Receipt Date: 20120523
  Transmission Date: 20120825
  Serious: Yes (Hospitalization, Other)
  Sender: FDA-Public Use
  Company Number: HR-JNJFOC-20120519681

PATIENT
  Age: 30 Year
  Sex: Male

DRUGS (7)
  1. DIAZEPAM [Suspect]
     Indication: SCHIZOPHRENIA
     Route: 065
  2. CLOZAPINE [Suspect]
     Indication: SCHIZOPHRENIA
     Route: 065
  3. RISPERIDONE [Suspect]
     Route: 030
  4. DIAZEPAM [Suspect]
     Dosage: 10MG IF NEEDED
     Route: 065
  5. RISPERIDONE [Suspect]
     Indication: SCHIZOPHRENIA
     Route: 030
  6. DEPAKENE [Suspect]
     Indication: SCHIZOPHRENIA
     Route: 065
  7. DEPAKENE [Suspect]
     Route: 065

REACTIONS (5)
  - PSYCHOMOTOR SKILLS IMPAIRED [None]
  - SCHIZOPHRENIA [None]
  - ASTHENIA [None]
  - FEELING HOT [None]
  - LOSS OF CONSCIOUSNESS [None]
